FAERS Safety Report 8435084-7 (Version None)
Quarter: 2012Q2

REPORT INFORMATION
  Report Type: 
  Country: None (occurrence: None)
  Receive Date: 20120614
  Receipt Date: 20120608
  Transmission Date: 20120825
  Serious: Yes (Other)
  Sender: FDA-Public Use
  Company Number: PHHY2011CA44363

PATIENT
  Sex: Female

DRUGS (4)
  1. ZOLEDRONOC ACID [Suspect]
     Route: 042
     Dates: start: 20100316
  2. CORTISONE ACETATE [Concomitant]
  3. ZOLEDRONOC ACID [Suspect]
     Route: 042
     Dates: start: 20110518
  4. ZOLEDRONOC ACID [Suspect]
     Indication: OSTEOPOROSIS
     Route: 042
     Dates: start: 20090218

REACTIONS (3)
  - CONCOMITANT DISEASE AGGRAVATED [None]
  - VENOUS INJURY [None]
  - LUNG INFECTION [None]
